FAERS Safety Report 6317435-2 (Version None)
Quarter: 2009Q3

REPORT INFORMATION
  Report Type: 
  Country: None (occurrence: None)
  Receive Date: 20090820
  Receipt Date: 20090820
  Transmission Date: 20100115
  Serious: Yes (Hospitalization)
  Sender: FDA-Public Use
  Company Number: None

PATIENT
  Age: 71 Year
  Sex: Female
  Weight: 78.9259 kg

DRUGS (2)
  1. CAPECITABINE [Suspect]
     Indication: BREAST CANCER
     Dosage: 2000MG/M2 D1-14 Q3WK PO
     Route: 048
     Dates: start: 20070813, end: 20070928
  2. DOCETAXEL [Suspect]
     Indication: BREAST CANCER
     Dosage: 75MG/M2 Q3WK IV BOLUS
     Route: 040
     Dates: start: 20070813, end: 20070928

REACTIONS (1)
  - BLOOD CREATININE INCREASED [None]
